FAERS Safety Report 20498980 (Version 1)
Quarter: 2022Q1

REPORT INFORMATION
  Report Type: Spontaneous
  Country: US (occurrence: US)
  Receive Date: 20220222
  Receipt Date: 20220222
  Transmission Date: 20220423
  Serious: Yes (Other)
  Sender: FDA-Public Use
  Company Number: US-NOVOPROD-892675

PATIENT
  Sex: Female

DRUGS (1)
  1. LEVEMIR [Suspect]
     Active Substance: INSULIN DETEMIR
     Indication: Type 1 diabetes mellitus
     Dosage: 16 IU, QD (11UNITS IN THE MORNING 5 AT NIGHT)
     Route: 058
     Dates: start: 2020

REACTIONS (3)
  - Altered state of consciousness [Recovered/Resolved]
  - Device issue [Unknown]
  - Blood glucose increased [Recovered/Resolved]
